FAERS Safety Report 6694237-9 (Version None)
Quarter: 2010Q2

REPORT INFORMATION
  Report Type: 
  Country: None (occurrence: None)
  Receive Date: 20100423
  Receipt Date: 20100413
  Transmission Date: 20101027
  Serious: Yes (Other)
  Sender: FDA-Public Use
  Company Number: US-JNJFOC-20091001144

PATIENT
  Sex: Female
  Weight: 67.13 kg

DRUGS (2)
  1. REMICADE [Suspect]
     Indication: COLITIS ULCERATIVE
     Route: 042
     Dates: start: 20071004
  2. LIPITOR [Concomitant]
     Indication: BLOOD CHOLESTEROL INCREASED

REACTIONS (5)
  - ARTHRALGIA [None]
  - JOINT SWELLING [None]
  - NEUROPATHY PERIPHERAL [None]
  - OEDEMA [None]
  - PAIN IN EXTREMITY [None]
